FAERS Safety Report 4932303-6 (Version None)
Quarter: 2006Q1

REPORT INFORMATION
  Report Type: 
  Country: None (occurrence: None)
  Receive Date: 20060228
  Receipt Date: 20060214
  Transmission Date: 20060701
  Serious: Yes (Other)
  Sender: FDA-Public Use
  Company Number: 2006-00360

PATIENT
  Age: 68 Year
  Sex: Male

DRUGS (1)
  1. VELCADE [Suspect]
     Indication: MULTIPLE MYELOMA
     Dates: start: 20040802

REACTIONS (4)
  - BONE MARROW FAILURE [None]
  - DIARRHOEA [None]
  - LUNG DISORDER [None]
  - NEUROPATHY PERIPHERAL [None]
